FAERS Safety Report 25791089 (Version 1)
Quarter: 2025Q3

REPORT INFORMATION
  Report Type: Report from Study
  Country: CA (occurrence: CA)
  Receive Date: 20250911
  Receipt Date: 20250911
  Transmission Date: 20251020
  Serious: Yes (Hospitalization)
  Sender: ABBVIE
  Company Number: CA-ABBVIE-6449540

PATIENT
  Sex: Female

DRUGS (1)
  1. RINVOQ [Suspect]
     Active Substance: UPADACITINIB
     Indication: Colitis ulcerative
     Route: 048

REACTIONS (9)
  - Gastrointestinal inflammation [Unknown]
  - Ocular discomfort [Unknown]
  - Lip swelling [Unknown]
  - Acne [Unknown]
  - Perioral dermatitis [Unknown]
  - Vomiting [Unknown]
  - Headache [Unknown]
  - Haematochezia [Unknown]
  - Defaecation urgency [Unknown]
